FAERS Safety Report 9145743 (Version 1)
Quarter: 2013Q1

REPORT INFORMATION
  Report Type: Spontaneous
  Country: US (occurrence: None)
  Receive Date: 20130205
  Receipt Date: 20130205
  Transmission Date: 20140127
  Serious: Yes (Death)
  Sender: FDA-Public Use
  Company Number: VAL_01317_2013

PATIENT
  Age: 39 Year
  Sex: Female

DRUGS (2)
  1. METOPROLOL [Suspect]
     Indication: PRODUCT USED FOR UNKNOWN INDICATION
     Dosage: (DF)?(UNKNOWN UNTIL NOT CONTINUING)
  2. AMITRIPTYLINE [Suspect]
     Indication: PRODUCT USED FOR UNKNOWN INDICATION
     Dosage: (DF)?(UNKNOWN UNTIL NOT CONTINUING)

REACTIONS (1)
  - Completed suicide [None]
